FAERS Safety Report 5103838-0 (Version None)
Quarter: 2006Q3

REPORT INFORMATION
  Report Type: 
  Country: None (occurrence: None)
  Receive Date: 20060911
  Receipt Date: 20060829
  Transmission Date: 20061208
  Serious: Yes (Death)
  Sender: FDA-Public Use
  Company Number: 2006106956

PATIENT
  Age: 50 Year
  Sex: Female

DRUGS (2)
  1. CAMPTOSAR [Suspect]
     Indication: GASTRIC CANCER
     Dosage: 60 MG/M2 (UNKNOWN), INTRAVENOUS
     Route: 042
     Dates: start: 20060822, end: 20060822
  2. CISPLATIN [Suspect]
     Indication: GASTRIC CANCER
     Dosage: 30 MG/M2 (UNKNOWN), INTRAVENOUS
     Route: 042
     Dates: start: 20060822, end: 20060822

REACTIONS (1)
  - DISSEMINATED INTRAVASCULAR COAGULATION [None]
